FAERS Safety Report 24645180 (Version 2)
Quarter: 2025Q2

REPORT INFORMATION
  Report Type: Spontaneous
  Country: US (occurrence: US)
  Receive Date: 20241121
  Receipt Date: 20250607
  Transmission Date: 20250717
  Serious: No
  Sender: COHERUS
  Company Number: US-Coherus Biosciences, Inc.-2024-COH-US000076

PATIENT

DRUGS (2)
  1. UDENYCA [Suspect]
     Active Substance: PEGFILGRASTIM-CBQV
     Indication: Prophylaxis
     Dosage: 6 MG, Q2WEEKS
     Route: 058
     Dates: start: 20231207, end: 20231207
  2. UDENYCA [Suspect]
     Active Substance: PEGFILGRASTIM-CBQV
     Dosage: 6 MG, Q2WEEKS
     Route: 058
     Dates: start: 20230201

REACTIONS (2)
  - Accidental exposure to product [Recovered/Resolved]
  - Wrong technique in device usage process [Recovered/Resolved]

NARRATIVE: CASE EVENT DATE: 20240201
